FAERS Safety Report 7789894-X (Version None)
Quarter: 2011Q3

REPORT INFORMATION
  Report Type: 
  Country: None (occurrence: None)
  Receive Date: 20110930
  Receipt Date: 20110517
  Transmission Date: 20111222
  Serious: No
  Sender: FDA-Public Use
  Company Number: US-ASTRAZENECA-2011SE11592

PATIENT
  Age: 63 Year
  Sex: Female

DRUGS (2)
  1. ARIMIDEX [Suspect]
     Route: 048
  2. LYRICA [Concomitant]

REACTIONS (7)
  - ASTHENIA [None]
  - HOT FLUSH [None]
  - NEURALGIA [None]
  - INSOMNIA [None]
  - LYMPHOEDEMA [None]
  - MUSCULOSKELETAL PAIN [None]
  - RADIOTHERAPY [None]
